FAERS Safety Report 16691920 (Version 2)
Quarter: 2019Q3

REPORT INFORMATION
  Report Type: Spontaneous
  Country: FR (occurrence: FR)
  Receive Date: 20190812
  Receipt Date: 20190812
  Transmission Date: 20191004
  Serious: Yes (Other)
  Sender: FDA-Public Use
  Company Number: FR-ACCORD-151032

PATIENT
  Age: 49 Year
  Sex: Female
  Weight: 51 kg

DRUGS (2)
  1. DOCETAXEL ACCORD [Suspect]
     Active Substance: DOCETAXEL
     Indication: BREAST CANCER
     Dosage: STRENGTH: 160 MG/8 ML
     Route: 041
     Dates: start: 20190724, end: 20190724
  2. HERZUMA [Suspect]
     Active Substance: TRASTUZUMAB-PKRB
     Indication: BREAST CANCER
     Route: 041
     Dates: start: 20190724, end: 20190724

REACTIONS (4)
  - Eyelid oedema [Recovered/Resolved]
  - Hypotension [Recovered/Resolved]
  - Rash macular [Recovered/Resolved]
  - Swelling [Recovered/Resolved]

NARRATIVE: CASE EVENT DATE: 20190724
